FAERS Safety Report 7640622-8 (Version None)
Quarter: 2011Q3

REPORT INFORMATION
  Report Type: 
  Country: None (occurrence: None)
  Receive Date: 20110728
  Receipt Date: 20110716
  Transmission Date: 20111222
  Serious: Yes (Death, Other)
  Sender: FDA-Public Use
  Company Number: US-PAR PHARMACEUTICAL, INC-2011SCPR003120

PATIENT

DRUGS (5)
  1. HYDROCODONE BITARTRATE AND ACETAMINOPHEN [Suspect]
     Indication: MUSCULOSKELETAL PAIN
     Dosage: HYDROCODONE/APAP 5/325 EIGHT TABLETS PER DAY
     Route: 065
  2. METHADON AMIDONE HCL TAB [Suspect]
     Indication: MUSCULOSKELETAL PAIN
     Dosage: 10 MG PER DAY
     Route: 065
  3. HYDROCODONE BITARTRATE AND ACETAMINOPHEN [Suspect]
     Dosage: ONE TABLET Q.6 H. P.R.N.
     Route: 065
  4. DIAZEPAM [Suspect]
     Indication: PRODUCT USED FOR UNKNOWN INDICATION
     Dosage: UNK, UNKNOWN
     Route: 065
  5. DOXEPIN [Suspect]
     Indication: PRODUCT USED FOR UNKNOWN INDICATION
     Dosage: UNK, UNKNOWN
     Route: 065

REACTIONS (3)
  - MULTIPLE DRUG OVERDOSE [None]
  - POLYSUBSTANCE DEPENDENCE [None]
  - DEATH [None]
